FAERS Safety Report 7445912-X (Version None)
Quarter: 2011Q2

REPORT INFORMATION
  Report Type: 
  Country: None (occurrence: None)
  Receive Date: 20110429
  Receipt Date: 20100625
  Transmission Date: 20111010
  Serious: No
  Sender: FDA-Public Use
  Company Number: US-ASTRAZENECA-2010SE29896

PATIENT
  Sex: Male
  Weight: 75.7 kg

DRUGS (1)
  1. NEXIUM [Suspect]
     Route: 048
     Dates: start: 20100601

REACTIONS (3)
  - DYSPHONIA [None]
  - COUGH [None]
  - DYSGEUSIA [None]
